FAERS Safety Report 8545715-9 (Version None)
Quarter: 2012Q3

REPORT INFORMATION
  Report Type: 
  Country: None (occurrence: None)
  Receive Date: 20120727
  Receipt Date: 20120723
  Transmission Date: 20120928
  Serious: Yes (Hospitalization)
  Sender: FDA-Public Use
  Company Number: DE-PFIZER INC-2012178258

PATIENT
  Age: 53 Year
  Sex: Female
  Weight: 56.4 kg

DRUGS (1)
  1. TORISEL [Suspect]
     Dosage: NO DOSE GIVEN

REACTIONS (2)
  - EPILEPSY [None]
  - METASTASES TO CENTRAL NERVOUS SYSTEM [None]
